FAERS Safety Report 17796963 (Version 3)
Quarter: 2020Q2

REPORT INFORMATION
  Report Type: Spontaneous
  Country: PL (occurrence: PL)
  Receive Date: 20200518
  Receipt Date: 20200626
  Transmission Date: 20200714
  Serious: Yes (Hospitalization, Other)
  Sender: FDA-Public Use
  Company Number: PL-ACCORD-182127

PATIENT
  Age: 56 Year
  Sex: Female

DRUGS (21)
  1. OXYGEN. [Suspect]
     Active Substance: OXYGEN
     Indication: PRODUCT USED FOR UNKNOWN INDICATION
     Dosage: HYPERBARIC OXYGEN
  2. ENOXAPARIN [Suspect]
     Active Substance: ENOXAPARIN
     Indication: OEDEMA PERIPHERAL
  3. CIPROFLOXACIN. [Suspect]
     Active Substance: CIPROFLOXACIN
     Indication: PNEUMONIA
     Dosage: UNK
     Route: 042
  4. CEFUROXIME. [Suspect]
     Active Substance: CEFUROXIME
     Indication: OTITIS MEDIA ACUTE
     Dosage: UNK
  5. AMOXICILLIN. [Suspect]
     Active Substance: AMOXICILLIN
     Indication: UPPER RESPIRATORY TRACT INFECTION
     Dosage: UNK
  6. LIDOCAINE. [Suspect]
     Active Substance: LIDOCAINE
     Indication: OTITIS MEDIA ACUTE
  7. POTASSIUM [Suspect]
     Active Substance: POTASSIUM
     Indication: OEDEMA PERIPHERAL
  8. HYDROKSYETYLSKROBIA [Concomitant]
  9. ENOXAPARIN [Suspect]
     Active Substance: ENOXAPARIN
     Indication: HYPOKALAEMIA
  10. OMEPRAZOLE. [Suspect]
     Active Substance: OMEPRAZOLE
     Indication: PNEUMONIA MYCOPLASMAL
     Route: 042
  11. CLARITHROMYCIN. [Suspect]
     Active Substance: CLARITHROMYCIN
     Indication: OTITIS MEDIA ACUTE
     Dosage: UNK
     Route: 042
  12. METHYLPREDNISOLONE. [Suspect]
     Active Substance: METHYLPREDNISOLONE
     Indication: PNEUMONIA MYCOPLASMAL
     Route: 042
  13. CEFTRIAXONE. [Suspect]
     Active Substance: CEFTRIAXONE
     Indication: PNEUMONIA
     Dosage: UNK
     Route: 042
  14. FUROSEMIDE. [Suspect]
     Active Substance: FUROSEMIDE
     Indication: OEDEMA PERIPHERAL
  15. FUROSEMIDE. [Suspect]
     Active Substance: FUROSEMIDE
     Indication: HYPOKALAEMIA
  16. HAES [Suspect]
     Active Substance: HETASTARCH
     Indication: PRODUCT USED FOR UNKNOWN INDICATION
     Route: 042
  17. KETOCONAZOLE. [Suspect]
     Active Substance: KETOCONAZOLE
     Indication: OTITIS MEDIA ACUTE
  18. POTASSIUM [Suspect]
     Active Substance: POTASSIUM
     Indication: HYPOKALAEMIA
  19. COCARBOXYLASE [Suspect]
     Active Substance: COCARBOXYLASE
     Indication: OTITIS MEDIA ACUTE
  20. DEXAMETHASONE. [Suspect]
     Active Substance: DEXAMETHASONE
     Indication: OTITIS MEDIA ACUTE
     Dosage: UNK
  21. PENTOXIFYLLINE. [Suspect]
     Active Substance: PENTOXIFYLLINE
     Indication: PNEUMONIA MYCOPLASMAL
     Route: 042

REACTIONS (10)
  - Hypokalaemia [Unknown]
  - Dizziness [Unknown]
  - Electrolyte imbalance [Unknown]
  - Deafness bilateral [Recovering/Resolving]
  - Vertigo [Unknown]
  - Oedema peripheral [Unknown]
  - Drug ineffective [Unknown]
  - Pneumonia mycoplasmal [Recovering/Resolving]
  - Otitis media [Recovering/Resolving]
  - Pneumonia [Unknown]
